FAERS Safety Report 20726334 (Version 2)
Quarter: 2024Q3

REPORT INFORMATION
  Report Type: Report from Study
  Country: US (occurrence: US)
  Receive Date: 20220419
  Receipt Date: 20240806
  Transmission Date: 20241017
  Serious: Yes (Hospitalization, Other)
  Sender: JAZZ
  Company Number: US-JAZZ-2021-US-019034

PATIENT
  Age: 25 Year
  Sex: Female

DRUGS (3)
  1. XYREM [Suspect]
     Active Substance: SODIUM OXYBATE
     Indication: Narcolepsy
     Dosage: 2.25 GRAM, BID
     Route: 048
     Dates: start: 202110, end: 202110
  2. XYREM [Suspect]
     Active Substance: SODIUM OXYBATE
     Indication: Cataplexy
     Dosage: 1.25 GRAM, BID
     Route: 048
     Dates: start: 202110, end: 202110
  3. XYREM [Suspect]
     Active Substance: SODIUM OXYBATE
     Indication: Somnolence
     Dosage: 1.75 GRAM, BID
     Route: 048
     Dates: start: 202110, end: 202110

REACTIONS (7)
  - Paralysis [Recovering/Resolving]
  - Myalgia [Recovering/Resolving]
  - Ulcer [Unknown]
  - Emotional poverty [Unknown]
  - Nausea [Not Recovered/Not Resolved]
  - Vomiting [Not Recovered/Not Resolved]
  - Sleep paralysis [Unknown]

NARRATIVE: CASE EVENT DATE: 20211001
